FAERS Safety Report 8578913-9 (Version None)
Quarter: 2012Q3

REPORT INFORMATION
  Report Type: 
  Country: None (occurrence: None)
  Receive Date: 20120808
  Receipt Date: 20120801
  Transmission Date: 20120928
  Serious: Yes (Other)
  Sender: FDA-Public Use
  Company Number: JP-ABBOTT-12P-087-0964661-00

PATIENT
  Sex: Male

DRUGS (3)
  1. LIPIDIL [Suspect]
     Indication: HYPERLIPIDAEMIA
     Route: 048
     Dates: start: 19980101, end: 20120607
  2. EPINASTINE HYDROCHLORIDE [Concomitant]
     Indication: PRODUCT USED FOR UNKNOWN INDICATION
     Dates: start: 19980101, end: 20120607
  3. BENZBROMARONE [Concomitant]
     Indication: PRODUCT USED FOR UNKNOWN INDICATION
     Dates: start: 19980101, end: 20120607

REACTIONS (1)
  - LIVER DISORDER [None]
